FAERS Safety Report 8204014-5 (Version None)
Quarter: 2012Q1

REPORT INFORMATION
  Report Type: 
  Country: None (occurrence: None)
  Receive Date: 20120313
  Receipt Date: 20120308
  Transmission Date: 20120608
  Serious: No
  Sender: FDA-Public Use
  Company Number: US-PFIZER INC-2012062566

PATIENT
  Sex: Female
  Weight: 86.168 kg

DRUGS (7)
  1. LIPITOR [Suspect]
     Indication: ATRIOVENTRICULAR BLOCK
  2. ATORVASTATIN CALCIUM [Suspect]
     Indication: ATRIOVENTRICULAR BLOCK
  3. PROTONIX [Concomitant]
     Dosage: UNK
  4. IMDUR [Concomitant]
     Dosage: UNK
  5. LIPITOR [Suspect]
     Indication: BLOOD CHOLESTEROL INCREASED
     Dosage: 40 MG, 1X/DAY
     Route: 048
     Dates: end: 20120201
  6. ACCUPRIL [Concomitant]
     Dosage: UNK
  7. ATORVASTATIN CALCIUM [Suspect]
     Indication: BLOOD CHOLESTEROL INCREASED
     Dosage: 40 MG, 1X/DAY
     Route: 048
     Dates: start: 20120225

REACTIONS (6)
  - MYALGIA [None]
  - PAIN IN EXTREMITY [None]
  - ASTHENIA [None]
  - INFLUENZA [None]
  - PYREXIA [None]
  - PAIN [None]
